FAERS Safety Report 8626540 (Version 2)
Quarter: 2013Q1

REPORT INFORMATION
  Report Type: Spontaneous
  Country: US (occurrence: US)
  Receive Date: 20120620
  Receipt Date: 20130122
  Transmission Date: 20140127
  Serious: Yes (Other)
  Sender: FDA-Public Use
  Company Number: US-PFIZER INC-2012144060

PATIENT
  Age: 74 Year
  Sex: Female
  Weight: 77.1 kg

DRUGS (4)
  1. EFFEXOR XR [Suspect]
     Indication: DEPRESSION
     Dosage: 75 MG, 1X/DAY
     Route: 048
     Dates: end: 2011
  2. EFFEXOR XR [Suspect]
     Indication: STRESS
  3. VENLAFAXINE HYDROCHLORIDE [Suspect]
     Indication: DEPRESSION
     Dosage: 75 MG, 1X/DAY
     Route: 048
     Dates: start: 2011
  4. VENLAFAXINE HYDROCHLORIDE [Suspect]
     Indication: STRESS

REACTIONS (13)
  - Arthritis [Unknown]
  - Arthropathy [Unknown]
  - Hypersensitivity [Unknown]
  - Flushing [Unknown]
  - Pyrexia [Unknown]
  - Face oedema [Unknown]
  - General physical condition normal [Unknown]
  - Therapeutic response unexpected [Unknown]
  - Abdominal discomfort [Unknown]
  - Nausea [Unknown]
  - Insomnia [Unknown]
  - Malaise [Unknown]
  - Fatigue [Unknown]
